FAERS Safety Report 15880600 (Version 3)
Quarter: 2020Q3

REPORT INFORMATION
  Report Type: Not Available
  Country: US (occurrence: US)
  Receive Date: 20190128
  Receipt Date: 20200727
  Transmission Date: 20201102
  Serious: No
  Sender: FDA-Public Use
  Company Number: US-NEUROCRINE BIOSCIENCES INC.-2019NBI00162

PATIENT
  Age: 77 Year
  Sex: Male
  Weight: 87.62 kg

DRUGS (7)
  1. AUSTEDO [Concomitant]
     Active Substance: DEUTETRABENAZINE
     Dates: start: 201711, end: 201806
  2. LISINOPRIL. [Concomitant]
     Active Substance: LISINOPRIL
  3. INGREZZA [Suspect]
     Active Substance: VALBENAZINE
     Indication: TARDIVE DYSKINESIA
     Route: 048
     Dates: start: 201806
  4. TAMSULOSIN [Concomitant]
     Active Substance: TAMSULOSIN
  5. BUPROPION. [Concomitant]
     Active Substance: BUPROPION
  6. ALLOPURINOL. [Concomitant]
     Active Substance: ALLOPURINOL
  7. ASPIRIN. [Concomitant]
     Active Substance: ASPIRIN
     Dosage: EVERY MORNING

REACTIONS (16)
  - Nausea [Unknown]
  - Fatigue [Unknown]
  - Agitation [Unknown]
  - Dizziness [Unknown]
  - Balance disorder [Unknown]
  - Gait disturbance [Unknown]
  - Lip swelling [Unknown]
  - Balance disorder [Recovered/Resolved]
  - Dysphonia [Unknown]
  - Confusional state [Unknown]
  - Apathy [Unknown]
  - Depression [Not Recovered/Not Resolved]
  - Lumbar radiculopathy [Unknown]
  - Hypoaesthesia [Unknown]
  - Asthenia [Unknown]
  - Parkinsonism [Not Recovered/Not Resolved]
